FAERS Safety Report 10007164 (Version 1)
Quarter: 2014Q1

REPORT INFORMATION
  Report Type: Spontaneous
  Country: US (occurrence: None)
  Receive Date: 20140311
  Receipt Date: 20140311
  Transmission Date: 20141002
  Serious: Yes (Other)
  Sender: FDA-Public Use
  Company Number: 2014SA027443

PATIENT
  Age: 36 Year
  Sex: Female

DRUGS (1)
  1. ASPERCREME HEAT RELIEVING GEL [Suspect]
     Indication: ARTHRALGIA
     Dates: start: 20140223

REACTIONS (2)
  - Chemical injury [None]
  - Blister [None]
